FAERS Safety Report 16976809 (Version 1)
Quarter: 2019Q4

REPORT INFORMATION
  Report Type: Spontaneous
  Country: US (occurrence: US)
  Receive Date: 20191030
  Receipt Date: 20191030
  Transmission Date: 20200122
  Serious: No
  Sender: FDA-Public Use
  Company Number: US-009507513-1910USA014820

PATIENT
  Sex: Female
  Weight: 58.96 kg

DRUGS (4)
  1. MIRAPEX [Concomitant]
     Active Substance: PRAMIPEXOLE DIHYDROCHLORIDE
  2. SINEMET CR [Suspect]
     Active Substance: CARBIDOPA\LEVODOPA
     Indication: PARKINSON^S DISEASE
     Dosage: UNK
     Route: 048
  3. RASAGILINE. [Concomitant]
     Active Substance: RASAGILINE
  4. LEVODOPA [Concomitant]
     Active Substance: LEVODOPA
     Dosage: 2 CAPSULES AS NEEDED.
     Dates: start: 201906

REACTIONS (1)
  - Therapeutic response shortened [Unknown]
